FAERS Safety Report 7700379-9 (Version None)
Quarter: 2011Q3

REPORT INFORMATION
  Report Type: 
  Country: None (occurrence: None)
  Receive Date: 20110822
  Receipt Date: 20110815
  Transmission Date: 20111222
  Serious: Yes (Other)
  Sender: FDA-Public Use
  Company Number: US-TEVA-296822USA

PATIENT
  Age: 12 Year
  Sex: Male

DRUGS (1)
  1. LEVETIRACETAM [Suspect]
     Indication: STATUS EPILEPTICUS
     Dosage: 1700 MILLIGRAM;

REACTIONS (3)
  - DRUG INEFFECTIVE [None]
  - FALL [None]
  - EPILEPSY [None]
